FAERS Safety Report 12119710 (Version 1)
Quarter: 2016Q1

REPORT INFORMATION
  Report Type: Spontaneous
  Country: IN (occurrence: IN)
  Receive Date: 20160226
  Receipt Date: 20160226
  Transmission Date: 20160526
  Serious: Yes (Other)
  Sender: FDA-Public Use
  Company Number: IN-MEDA-2016020045

PATIENT
  Age: 36 Year
  Sex: Male

DRUGS (2)
  1. D-PENICILLAMINE [Suspect]
     Active Substance: PENICILLAMINE
     Indication: HEPATO-LENTICULAR DEGENERATION
  2. ZINC [Concomitant]
     Active Substance: ZINC\ZINC CHLORIDE
     Indication: HEPATO-LENTICULAR DEGENERATION

REACTIONS (4)
  - Rash maculo-papular [Unknown]
  - Acute lung injury [Recovered/Resolved]
  - Interstitial lung disease [Recovered/Resolved]
  - Toxicity to various agents [Recovered/Resolved]
